FAERS Safety Report 12176701 (Version 1)
Quarter: 2016Q1

REPORT INFORMATION
  Report Type: Spontaneous
  Country: US (occurrence: US)
  Receive Date: 20160314
  Receipt Date: 20160314
  Transmission Date: 20160526
  Serious: No
  Sender: FDA-Public Use
  Company Number: US-AKORN PHARMACEUTICALS-2015VER00076

PATIENT
  Sex: Female

DRUGS (2)
  1. UNSPECIFIED BIRTH CONTROL PILLS [Suspect]
     Active Substance: UNSPECIFIED INGREDIENT
  2. MYORISAN [Suspect]
     Active Substance: ISOTRETINOIN
     Dosage: UNK
     Dates: start: 20141124, end: 20150113

REACTIONS (1)
  - Nausea [Unknown]
